FAERS Safety Report 10331150 (Version 2)
Quarter: 2014Q3

REPORT INFORMATION
  Report Type: Spontaneous
  Country: GB (occurrence: GB)
  Receive Date: 20140722
  Receipt Date: 20140722
  Transmission Date: 20150326
  Serious: Yes (Hospitalization, Other)
  Sender: FDA-Public Use
  Company Number: GB-NOVOPROD-415504

PATIENT
  Age: 29 Year
  Sex: Male
  Weight: 143.1 kg

DRUGS (8)
  1. VICTOZA [Suspect]
     Active Substance: LIRAGLUTIDE
     Indication: GLYCOSYLATED HAEMOGLOBIN INCREASED
  2. ORLISTAT [Concomitant]
     Active Substance: ORLISTAT
     Dosage: UNK
     Route: 065
  3. FENOFIBRATE. [Concomitant]
     Active Substance: FENOFIBRATE
     Dosage: 267
     Route: 065
     Dates: start: 2008
  4. ROSUVASTATIN [Concomitant]
     Active Substance: ROSUVASTATIN
     Dosage: 10 MG
     Route: 065
     Dates: start: 2008
  5. METFORMIN [Concomitant]
     Active Substance: METFORMIN HYDROCHLORIDE
     Dosage: 1 G, BID
     Route: 065
     Dates: start: 2007
  6. VICTOZA [Suspect]
     Active Substance: LIRAGLUTIDE
     Indication: BODY MASS INDEX INCREASED
     Dosage: 1.8 MG, QD
     Route: 065
     Dates: start: 20121018, end: 20140617
  7. GLIMEPIRIDE. [Concomitant]
     Active Substance: GLIMEPIRIDE
     Dosage: 6 MG, QD
     Route: 065
     Dates: start: 2009, end: 20140618
  8. OMACOR [Concomitant]
     Active Substance: OMEGA-3-ACID ETHYL ESTERS
     Dosage: UNK
     Route: 065
     Dates: start: 2009, end: 20140618

REACTIONS (2)
  - Diabetic ketoacidosis [Unknown]
  - Pancreatitis necrotising [Recovered/Resolved with Sequelae]

NARRATIVE: CASE EVENT DATE: 20140618
